FAERS Safety Report 4678505-8 (Version None)
Quarter: 2005Q2

REPORT INFORMATION
  Report Type: 
  Country: None (occurrence: None)
  Receive Date: 20050601
  Receipt Date: 20050525
  Transmission Date: 20051028
  Serious: Yes (Hospitalization, Other)
  Sender: FDA-Public Use
  Company Number: PHNU2005DE02062

PATIENT
  Age: 74 Year
  Sex: Female

DRUGS (2)
  1. TEGRETOL [Suspect]
     Indication: EPILEPSY
     Dosage: 400 MG, BID
     Route: 048
     Dates: start: 19950101
  2. ANTIEPILEPTICS [Concomitant]
     Indication: EPILEPSY

REACTIONS (4)
  - FEMORAL NECK FRACTURE [None]
  - GAMMA-GLUTAMYLTRANSFERASE INCREASED [None]
  - IMPAIRED HEALING [None]
  - OSTEOSYNTHESIS [None]
